FAERS Safety Report 5860155-9 (Version None)
Quarter: 2008Q3

REPORT INFORMATION
  Report Type: 
  Country: None (occurrence: None)
  Receive Date: 20080827
  Receipt Date: 20080818
  Transmission Date: 20090109
  Serious: Yes (Death, Hospitalization)
  Sender: FDA-Public Use
  Company Number: BR-JNJFOC-20080802847

PATIENT
  Sex: Male

DRUGS (5)
  1. TYLENOL (CAPLET) [Suspect]
  2. TYLENOL (CAPLET) [Suspect]
     Indication: SCAR PAIN
  3. CAPTOPRIL [Concomitant]
     Indication: HYPERTENSION
  4. ALDACTONE [Concomitant]
  5. OMEPRAZOLE [Concomitant]

REACTIONS (3)
  - DEATH [None]
  - HYPOKINESIA [None]
  - SOMNOLENCE [None]
